FAERS Safety Report 25889280 (Version 1)
Quarter: 2025Q4

REPORT INFORMATION
  Report Type: Report from Study
  Country: CA (occurrence: CA)
  Receive Date: 20251007
  Receipt Date: 20251007
  Transmission Date: 20260117
  Serious: Yes (Other)
  Sender: BRISTOL-MYERS SQUIBB COMPANY
  Company Number: CA-BRISTOL-MYERS SQUIBB COMPANY-2025-076622

PATIENT
  Age: 67 Year
  Sex: Male

DRUGS (4)
  1. CAMZYOS [Suspect]
     Active Substance: MAVACAMTEN
     Indication: Hypertrophic cardiomyopathy
     Dates: start: 20250223
  2. CAMZYOS [Suspect]
     Active Substance: MAVACAMTEN
  3. CAMZYOS [Suspect]
     Active Substance: MAVACAMTEN
     Dates: start: 202509
  4. BISOPROLOL [Concomitant]
     Active Substance: BISOPROLOL
     Indication: Product used for unknown indication

REACTIONS (4)
  - Aortic dilatation [Unknown]
  - Left ventricular outflow tract gradient increased [Unknown]
  - Mitral valve incompetence [Unknown]
  - Systolic anterior motion of mitral valve [Unknown]

NARRATIVE: CASE EVENT DATE: 20250401
